FAERS Safety Report 7593026-0 (Version None)
Quarter: 2011Q3

REPORT INFORMATION
  Report Type: 
  Country: None (occurrence: None)
  Receive Date: 20110706
  Receipt Date: 20110628
  Transmission Date: 20111222
  Serious: Yes (Other)
  Sender: FDA-Public Use
  Company Number: BR-GLAXOSMITHKLINE-B0731101A

PATIENT
  Sex: Male
  Weight: 65 kg

DRUGS (7)
  1. ROSUVASTATIN CALCIUM [Concomitant]
     Indication: BLOOD CHOLESTEROL
     Dosage: 20MG PER DAY
     Route: 048
     Dates: start: 20060101
  2. AMLODIPINE BESYLATE [Concomitant]
     Indication: HYPERTENSION
     Dosage: 5MG PER DAY
     Route: 048
     Dates: start: 20060101
  3. UNKNOWN DRUG [Concomitant]
     Indication: ANTICOAGULANT THERAPY
     Route: 048
     Dates: start: 20060101, end: 20090101
  4. GLICLAZIDE [Concomitant]
     Indication: DIABETES MELLITUS
     Dosage: 1.5MG PER DAY
     Route: 048
  5. NIMODIPINE [Concomitant]
     Indication: ILL-DEFINED DISORDER
     Dosage: 6TAB PER DAY
     Route: 048
     Dates: start: 20100101
  6. PROPAFENONE HCL [Suspect]
     Indication: HEART RATE IRREGULAR
     Dosage: .5TAB TWICE PER DAY
     Dates: start: 20060101
  7. CLOPIDOGREL [Concomitant]
     Indication: ANTICOAGULANT THERAPY
     Dosage: 75MG PER DAY
     Route: 048
     Dates: start: 20090101

REACTIONS (3)
  - ISCHAEMIA [None]
  - WRONG TECHNIQUE IN DRUG USAGE PROCESS [None]
  - CONVULSION [None]
